FAERS Safety Report 10256032 (Version 1)
Quarter: 2014Q2

REPORT INFORMATION
  Report Type: Spontaneous
  Country: US (occurrence: US)
  Receive Date: 20140624
  Receipt Date: 20140624
  Transmission Date: 20141212
  Serious: No
  Sender: FDA-Public Use
  Company Number: US-ZOGENIX, INC.-2012ZX000052

PATIENT
  Age: 32 Year
  Sex: Male
  Weight: 70.82 kg

DRUGS (2)
  1. SUMAVEL DOSEPRO [Suspect]
     Indication: MIGRAINE
     Dates: start: 201102
  2. TOPAMAX [Concomitant]
     Indication: MIGRAINE
     Dates: start: 201102

REACTIONS (4)
  - Injection site extravasation [Recovered/Resolved]
  - Incorrect dose administered by device [Recovered/Resolved]
  - Drug ineffective [Recovered/Resolved]
  - Weight decreased [Unknown]
